FAERS Safety Report 26077545 (Version 1)
Quarter: 2025Q4

REPORT INFORMATION
  Report Type: Spontaneous
  Country: US (occurrence: US)
  Receive Date: 20251121
  Receipt Date: 20251121
  Transmission Date: 20260118
  Serious: No
  Sender: NOVO NORDISK
  Company Number: US-NOVOPROD-1494536

PATIENT
  Age: 73 Year
  Sex: Female

DRUGS (1)
  1. TRESIBA [Suspect]
     Active Substance: INSULIN DEGLUDEC
     Indication: Diabetes mellitus
     Dosage: 20 IU, QD
     Route: 058
     Dates: start: 2023

REACTIONS (2)
  - Back pain [Not Recovered/Not Resolved]
  - Ear congestion [Not Recovered/Not Resolved]

NARRATIVE: CASE EVENT DATE: 20240101
